FAERS Safety Report 9860027 (Version 1)
Quarter: 2014Q1

REPORT INFORMATION
  Report Type: Report from Study
  Country: FR (occurrence: FR)
  Receive Date: 20140131
  Receipt Date: 20140131
  Transmission Date: 20141002
  Serious: Yes (Death)
  Sender: FDA-Public Use
  Company Number: FR-CELGENEUS-056-C4047-14014401

PATIENT
  Sex: Female
  Weight: 36 kg

DRUGS (7)
  1. CC-4047 [Suspect]
     Indication: PLASMA CELL MYELOMA
     Dosage: 4 MILLIGRAM
     Route: 048
     Dates: start: 20130726, end: 20131105
  2. DEXAMETHASONE [Suspect]
     Indication: PLASMA CELL MYELOMA
     Dosage: 20 MILLIGRAM
     Route: 065
  3. AREDIA [Concomitant]
     Indication: PRODUCT USED FOR UNKNOWN INDICATION
     Route: 041
  4. PREVISCAN [Concomitant]
     Indication: PROPHYLAXIS
     Route: 048
     Dates: end: 20131105
  5. SPECIAFOLDINE [Concomitant]
     Indication: PROPHYLAXIS
     Route: 048
     Dates: start: 20130526, end: 20131105
  6. ZELITREX [Concomitant]
     Indication: PROPHYLAXIS
     Route: 048
     Dates: start: 20130526, end: 20131105
  7. BACTRIM [Concomitant]
     Indication: PROPHYLAXIS
     Route: 048
     Dates: start: 20130526, end: 20131105

REACTIONS (2)
  - Sepsis [Fatal]
  - Plasma cell myeloma [Fatal]
